FAERS Safety Report 12565629 (Version 1)
Quarter: 2016Q3

REPORT INFORMATION
  Report Type: Spontaneous
  Country: US (occurrence: US)
  Receive Date: 20160718
  Receipt Date: 20160718
  Transmission Date: 20161109
  Serious: No
  Sender: FDA-Public Use
  Company Number: US-BAUSCH-BL-2015-017272

PATIENT
  Age: 72 Year
  Sex: Female
  Weight: 63.56 kg

DRUGS (5)
  1. BESIVANCE [Suspect]
     Active Substance: BESIFLOXACIN
     Indication: INFECTION
     Route: 061
     Dates: start: 20150623, end: 20150707
  2. BESIVANCE [Suspect]
     Active Substance: BESIFLOXACIN
     Route: 061
     Dates: start: 20150707
  3. AMITIZA [Concomitant]
     Active Substance: LUBIPROSTONE
     Indication: CONSTIPATION
     Route: 048
  4. SYNTHROID [Concomitant]
     Active Substance: LEVOTHYROXINE SODIUM
     Indication: HYPOTHYROIDISM
     Route: 048
  5. OMEGA 3 [Concomitant]
     Active Substance: OMEGA-3 FATTY ACIDS
     Indication: SUPPLEMENTATION THERAPY
     Route: 048

REACTIONS (3)
  - Product quality issue [Recovered/Resolved]
  - Vision blurred [Recovered/Resolved]
  - Eye discharge [Recovered/Resolved]

NARRATIVE: CASE EVENT DATE: 20150623
